FAERS Safety Report 5734504-6 (Version None)
Quarter: 2008Q2

REPORT INFORMATION
  Report Type: 
  Country: None (occurrence: None)
  Receive Date: 20080512
  Receipt Date: 20080506
  Transmission Date: 20081010
  Serious: Yes (Hospitalization, Other)
  Sender: FDA-Public Use
  Company Number: US-BRISTOL-MYERS SQUIBB COMPANY-14081863

PATIENT
  Age: 58 Year
  Sex: Female
  Weight: 75 kg

DRUGS (9)
  1. IXEMPRA KIT [Suspect]
     Indication: BREAST CANCER METASTATIC
     Route: 041
     Dates: start: 20080131, end: 20080131
  2. MULTI-VITAMIN [Concomitant]
  3. VITAMIN B6 [Concomitant]
  4. VITAMIN E [Concomitant]
  5. CALCIUM [Concomitant]
  6. BENADRYL [Concomitant]
     Indication: PREMEDICATION
     Dates: start: 20080131
  7. DEXAMETHASONE [Concomitant]
     Indication: PREMEDICATION
     Dates: start: 20080131
  8. ALOXI [Concomitant]
     Indication: PREMEDICATION
     Dates: start: 20080131
  9. PEPCID [Concomitant]
     Indication: PREMEDICATION
     Dates: start: 20080131

REACTIONS (8)
  - CANDIDIASIS [None]
  - ENDOCARDITIS [None]
  - ERYTHEMA MULTIFORME [None]
  - FEBRILE NEUTROPENIA [None]
  - METASTASES TO CENTRAL NERVOUS SYSTEM [None]
  - MUCOSAL INFLAMMATION [None]
  - NEUTROPENIA [None]
  - PALMAR-PLANTAR ERYTHRODYSAESTHESIA SYNDROME [None]
